FAERS Safety Report 10040452 (Version 2)
Quarter: 2014Q2

REPORT INFORMATION
  Report Type: Spontaneous
  Country: DE (occurrence: DE)
  Receive Date: 20140327
  Receipt Date: 20140425
  Transmission Date: 20141212
  Serious: Yes (Other)
  Sender: FDA-Public Use
  Company Number: DE-AMGEN-DEUSP2014021740

PATIENT
  Age: 49 Year
  Sex: Female

DRUGS (2)
  1. ENBREL [Suspect]
     Indication: RHEUMATOID ARTHRITIS
     Dosage: 50 MG, WEEKLY
     Route: 065
     Dates: start: 2005
  2. CORTISONE [Suspect]
     Indication: RHEUMATOID ARTHRITIS
     Dosage: 2 MG, UNK
     Route: 065

REACTIONS (1)
  - Blepharitis [Not Recovered/Not Resolved]
